FAERS Safety Report 15432193 (Version 1)
Quarter: 2018Q3

REPORT INFORMATION
  Report Type: Spontaneous
  Country: JP (occurrence: JP)
  Receive Date: 20180926
  Receipt Date: 20180926
  Transmission Date: 20181010
  Serious: Yes (Other)
  Sender: FDA-Public Use
  Company Number: PHHY2018JP100529

PATIENT
  Age: 68 Year
  Sex: Female

DRUGS (1)
  1. LEVOFLOXACIN. [Suspect]
     Active Substance: LEVOFLOXACIN
     Indication: SCRUB TYPHUS
     Route: 065

REACTIONS (8)
  - Movement disorder [Recovered/Resolved]
  - Hyperreflexia [Recovered/Resolved]
  - Neck pain [Recovered/Resolved]
  - Japanese spotted fever [Recovered/Resolved]
  - Mononeuropathy multiplex [Recovered/Resolved]
  - Hyporeflexia [Recovered/Resolved]
  - Meningitis aseptic [Recovered/Resolved]
  - Hyperaesthesia [Recovered/Resolved]
